FAERS Safety Report 8004521-4 (Version None)
Quarter: 2011Q4

REPORT INFORMATION
  Report Type: 
  Country: None (occurrence: None)
  Receive Date: 20111221
  Receipt Date: 20111221
  Transmission Date: 20120403
  Serious: Yes (Hospitalization)
  Sender: FDA-Public Use
  Company Number: None

PATIENT
  Age: 23 Year
  Sex: Female
  Weight: 61.7 kg

DRUGS (5)
  1. PROZAC [Suspect]
     Indication: DEPRESSION
     Dosage: 100MG DAILY PO CHRONIC
     Route: 048
  2. ACETAMINOPHEN [Concomitant]
  3. VITAMIN B-12 [Concomitant]
  4. CLONAZEPAM [Concomitant]
  5. TRAZODONE HCL [Suspect]
     Dosage: 75MG QHS PO CHRONIC
     Route: 048

REACTIONS (5)
  - LOSS OF CONSCIOUSNESS [None]
  - ROAD TRAFFIC ACCIDENT [None]
  - CONVULSION [None]
  - UNRESPONSIVE TO STIMULI [None]
  - ELECTROCARDIOGRAM QT PROLONGED [None]
